FAERS Safety Report 14020707 (Version 1)
Quarter: 2017Q3

REPORT INFORMATION
  Report Type: Spontaneous
  Country: DE (occurrence: DE)
  Receive Date: 20170928
  Receipt Date: 20170928
  Transmission Date: 20171128
  Serious: Yes (Hospitalization, Other)
  Sender: FDA-Public Use
  Company Number: DE-BAYER-2017-181535

PATIENT
  Age: 38 Year
  Sex: Female

DRUGS (1)
  1. MIRENA [Suspect]
     Active Substance: LEVONORGESTREL
     Dosage: UNK
     Dates: start: 201410, end: 201605

REACTIONS (10)
  - Dizziness [Recovered/Resolved]
  - Headache [Recovering/Resolving]
  - Muscle tightness [Not Recovered/Not Resolved]
  - Progesterone decreased [Not Recovered/Not Resolved]
  - Abdominal discomfort [Recovered/Resolved with Sequelae]
  - Breast mass [Recovered/Resolved]
  - Blood testosterone increased [Not Recovered/Not Resolved]
  - Gastrointestinal disorder [Recovered/Resolved with Sequelae]
  - Anxiety disorder [Recovered/Resolved with Sequelae]
  - Immunodeficiency [Not Recovered/Not Resolved]

NARRATIVE: CASE EVENT DATE: 2014
